FAERS Safety Report 8027466-2 (Version None)
Quarter: 2012Q1

REPORT INFORMATION
  Report Type: 
  Country: None (occurrence: None)
  Receive Date: 20120106
  Receipt Date: 20111227
  Transmission Date: 20120608
  Serious: Yes (Death)
  Sender: FDA-Public Use
  Company Number: US-JNJFOC-20111212630

PATIENT
  Age: 27 Year
  Sex: Male

DRUGS (4)
  1. ACETAMINOPHEN [Suspect]
     Indication: SUICIDE ATTEMPT
  2. SALICYLATES NOS [Concomitant]
     Indication: SUICIDE ATTEMPT
  3. ACETAMINOPHEN [Suspect]
  4. ACETMINOPHEN/ DIPHENHYDRAMINE [Suspect]
     Indication: SUICIDE ATTEMPT

REACTIONS (1)
  - TOXICITY TO VARIOUS AGENTS [None]
